FAERS Safety Report 20845120 (Version 1)
Quarter: 2022Q2

REPORT INFORMATION
  Report Type: Spontaneous
  Country: US (occurrence: US)
  Receive Date: 20220518
  Receipt Date: 20220518
  Transmission Date: 20220721
  Serious: No
  Sender: FDA-Public Use
  Company Number: US-HORIZON THERAPEUTICS-HZN-2021-004479

PATIENT
  Age: 6 Year
  Sex: Female

DRUGS (4)
  1. RAVICTI [Suspect]
     Active Substance: GLYCEROL PHENYLBUTYRATE
     Indication: Ornithine transcarbamoylase deficiency
     Dosage: UNK
     Route: 065
  2. BUPHENYL [Suspect]
     Active Substance: SODIUM PHENYLBUTYRATE
     Indication: Ornithine transcarbamoylase deficiency
     Route: 065
  3. CITRULLINE [Concomitant]
     Active Substance: CITRULLINE
     Indication: Supplementation therapy
  4. ARGININE [Concomitant]
     Active Substance: ARGININE
     Indication: Supplementation therapy

REACTIONS (2)
  - Gastrointestinal pain [Unknown]
  - Hepatic enzyme increased [Unknown]
